FAERS Safety Report 23848339 (Version 1)
Quarter: 2024Q2

REPORT INFORMATION
  Report Type: Report from Study
  Country: CA (occurrence: CA)
  Receive Date: 20240513
  Receipt Date: 20240513
  Transmission Date: 20240716
  Serious: Yes (Hospitalization)
  Sender: FDA-Public Use
  Company Number: CA-BEH-2023161936

PATIENT
  Age: 9 Year
  Sex: Female
  Weight: 25 kg

DRUGS (2)
  1. HIZENTRA [Suspect]
     Active Substance: HUMAN IMMUNOGLOBULIN G
     Indication: Primary immunodeficiency syndrome
     Dosage: 4 GRAM, QW
     Route: 065
     Dates: start: 20180727
  2. HIZENTRA [Suspect]
     Active Substance: HUMAN IMMUNOGLOBULIN G
     Dosage: 20 MILLILITER, QW
     Route: 065

REACTIONS (5)
  - Pneumonia pseudomonal [Unknown]
  - Hereditary non-polyposis colorectal cancer syndrome [Unknown]
  - Infusion site mass [Unknown]
  - Hospitalisation [Unknown]
  - Injection site mass [Unknown]
